FAERS Safety Report 10003915 (Version 1)
Quarter: 2014Q1

REPORT INFORMATION
  Report Type: Spontaneous
  Country: US (occurrence: US)
  Receive Date: 20140312
  Receipt Date: 20140312
  Transmission Date: 20141002
  Serious: No
  Sender: FDA-Public Use
  Company Number: US-ABBVIE-14P-163-1201934-00

PATIENT
  Age: 63 Year
  Sex: Female
  Weight: 147.55 kg

DRUGS (11)
  1. DEPAKOTE [Suspect]
     Indication: MENTAL DISORDER
     Dates: start: 201306
  2. RISPERDAL [Suspect]
     Indication: PSYCHOTIC DISORDER
     Dates: start: 201306
  3. AMLODIPINE BENAZEPRIL [Concomitant]
     Indication: BLOOD PRESSURE
     Dosage: 5MG/40MG, EVERY MORNING
     Dates: start: 201206
  4. GLIPIZIDE [Concomitant]
     Indication: DIABETES MELLITUS
  5. METFORMIN [Concomitant]
     Indication: DIABETES MELLITUS
  6. JANUVIA [Concomitant]
     Indication: DIABETES MELLITUS
  7. SIMVASTATIN [Concomitant]
     Indication: BLOOD CHOLESTEROL
  8. TRAMADOL [Concomitant]
     Indication: PAIN
  9. LEVEMIR [Concomitant]
     Indication: DIABETES MELLITUS
  10. TYLENOL [Concomitant]
     Indication: PAIN
  11. CENTRUM [Concomitant]
     Indication: VITAMIN SUPPLEMENTATION

REACTIONS (1)
  - Weight increased [Not Recovered/Not Resolved]
